FAERS Safety Report 13249324 (Version 1)
Quarter: 2017Q1

REPORT INFORMATION
  Report Type: Spontaneous
  Country: US (occurrence: US)
  Receive Date: 20170218
  Receipt Date: 20170218
  Transmission Date: 20170428
  Serious: No
  Sender: FDA-Public Use
  Company Number: US-ALLERGAN-1676756US

PATIENT
  Age: 70 Year
  Sex: Female

DRUGS (3)
  1. RESTASIS [Suspect]
     Active Substance: CYCLOSPORINE
     Indication: LACRIMATION DECREASED
     Dosage: UNK
     Route: 047
     Dates: start: 201607, end: 201611
  2. RESTASIS [Suspect]
     Active Substance: CYCLOSPORINE
     Indication: DACRYOSTENOSIS ACQUIRED
  3. LAMICTAL [Concomitant]
     Active Substance: LAMOTRIGINE
     Indication: BIPOLAR DISORDER
     Dosage: 200 MG, UNK
     Route: 048

REACTIONS (3)
  - Vision blurred [Recovered/Resolved]
  - Inappropriate schedule of drug administration [Unknown]
  - Visual impairment [Recovered/Resolved]

NARRATIVE: CASE EVENT DATE: 201607
